FAERS Safety Report 11964621 (Version 1)
Quarter: 2016Q1

REPORT INFORMATION
  Report Type: Spontaneous
  Country: US (occurrence: None)
  Receive Date: 20160122
  Receipt Date: 20160122
  Transmission Date: 20160526
  Serious: No
  Sender: FDA-Public Use
  Company Number: None

PATIENT
  Age: 64 Year
  Sex: Female

DRUGS (6)
  1. TOUJEO [Suspect]
     Active Substance: INSULIN GLARGINE
  2. HUMULIN NOS [Suspect]
     Active Substance: INSULIN HUMAN
  3. CYMBALTA [Suspect]
     Active Substance: DULOXETINE HYDROCHLORIDE
  4. DULOXETINE. [Suspect]
     Active Substance: DULOXETINE
  5. HUMALOG [Suspect]
     Active Substance: INSULIN LISPRO
  6. CRESTOR [Suspect]
     Active Substance: ROSUVASTATIN CALCIUM

REACTIONS (7)
  - Dizziness [None]
  - Drug ineffective [None]
  - Blood glucose decreased [None]
  - Confusional state [None]
  - Blood glucose increased [None]
  - Headache [None]
  - Abdominal pain upper [None]
